FAERS Safety Report 7060975-1 (Version None)
Quarter: 2010Q4

REPORT INFORMATION
  Report Type: 
  Country: None (occurrence: None)
  Receive Date: 20101026
  Receipt Date: 20101012
  Transmission Date: 20110411
  Serious: Yes (Hospitalization)
  Sender: FDA-Public Use
  Company Number: DK-RANBAXY-2010RR-38886

PATIENT
  Sex: Female

DRUGS (2)
  1. SIMVASTATIN [Suspect]
     Indication: DYSLIPIDAEMIA
     Dosage: UNK
     Route: 048
     Dates: start: 20100101, end: 20100903
  2. LETROZOLE [Concomitant]
     Indication: BREAST CANCER
     Dosage: UNK
     Route: 048
     Dates: start: 20100515

REACTIONS (3)
  - GROIN PAIN [None]
  - MYOSITIS [None]
  - PAIN IN EXTREMITY [None]
